FAERS Safety Report 24618450 (Version 5)
Quarter: 2025Q1

REPORT INFORMATION
  Report Type: Spontaneous
  Country: US (occurrence: US)
  Receive Date: 20241114
  Receipt Date: 20250327
  Transmission Date: 20250409
  Serious: Yes (Other)
  Sender: X4 PHARMACEUTICALS
  Company Number: US-X4 PHARMACEUTICALS, INC-US-X4P-2024-000135

PATIENT
  Age: 67 Year
  Sex: Female
  Weight: 52.16 kg

DRUGS (12)
  1. XOLREMDI [Suspect]
     Active Substance: MAVORIXAFOR
     Indication: Combined immunodeficiency
     Dosage: 400 MILLIGRAM, QD
     Route: 048
     Dates: start: 20240903, end: 20240924
  2. XOLREMDI [Suspect]
     Active Substance: MAVORIXAFOR
     Dosage: 100 MILLIGRAM, QD
     Route: 048
     Dates: start: 20241001
  3. XOLREMDI [Suspect]
     Active Substance: MAVORIXAFOR
     Dosage: 100 MILLIGRAM, TIW
     Route: 048
  4. XOLREMDI [Suspect]
     Active Substance: MAVORIXAFOR
     Dosage: 100 MILLIGRAM,BIW
     Route: 048
  5. XOLREMDI [Suspect]
     Active Substance: MAVORIXAFOR
     Dosage: 100 MILLIGRAM, QD
     Route: 048
     Dates: end: 20250312
  6. ZYRTEC [Concomitant]
     Active Substance: CETIRIZINE HYDROCHLORIDE
     Indication: Product used for unknown indication
  7. GABAPENTIN [Concomitant]
     Active Substance: GABAPENTIN
     Indication: Product used for unknown indication
  8. FLONASE [Concomitant]
     Active Substance: FLUTICASONE PROPIONATE
     Indication: Product used for unknown indication
  9. CRESTOR [Concomitant]
     Active Substance: ROSUVASTATIN CALCIUM
     Indication: Product used for unknown indication
  10. IBUPROFEN [Concomitant]
     Active Substance: IBUPROFEN
     Indication: Product used for unknown indication
  11. MIRAPEX [Concomitant]
     Active Substance: PRAMIPEXOLE DIHYDROCHLORIDE
     Indication: Product used for unknown indication
  12. SINGULAIR [Concomitant]
     Active Substance: MONTELUKAST SODIUM
     Indication: Product used for unknown indication

REACTIONS (8)
  - Pyrexia [Recovering/Resolving]
  - Pain [Not Recovered/Not Resolved]
  - Arthralgia [Not Recovered/Not Resolved]
  - Gastrointestinal disorder [Not Recovered/Not Resolved]
  - Feeling jittery [Recovering/Resolving]
  - Bone pain [Recovering/Resolving]
  - Urinary incontinence [Not Recovered/Not Resolved]
  - Neutrophil count increased [Not Recovered/Not Resolved]

NARRATIVE: CASE EVENT DATE: 20241031
